FAERS Safety Report 16746951 (Version 1)
Quarter: 2019Q3

REPORT INFORMATION
  Report Type: Spontaneous
  Country: US (occurrence: US)
  Receive Date: 20190827
  Receipt Date: 20190827
  Transmission Date: 20191005
  Serious: No
  Sender: FDA-Public Use
  Company Number: US-SA-2019SA235152

PATIENT
  Age: 31 Year
  Sex: Female

DRUGS (7)
  1. STERILE WATER [Concomitant]
     Active Substance: WATER
     Dosage: UNK UNK, UNK
     Route: 042
     Dates: start: 20190206
  2. HEPARIN [Concomitant]
     Active Substance: HEPARIN SODIUM
  3. DIPHENHYDRAMINE. [Concomitant]
     Active Substance: DIPHENHYDRAMINE
     Dosage: 25 MG, PRN
     Route: 048
     Dates: start: 20190206
  4. NORMAL SALINE [Concomitant]
     Active Substance: SODIUM CHLORIDE
     Dosage: UNK UNK, UNK
     Route: 042
     Dates: start: 20190206
  5. EPINEPHRINE. [Concomitant]
     Active Substance: EPINEPHRINE
     Dosage: 0.3 MG, PRN
     Route: 030
     Dates: start: 20190206
  6. FABRAZYME [Suspect]
     Active Substance: AGALSIDASE BETA
     Indication: FABRY^S DISEASE
     Dosage: 50 MG, QOW
     Route: 042
     Dates: start: 20180718
  7. SODIUM CHLORIDE. [Concomitant]
     Active Substance: SODIUM CHLORIDE
     Dosage: UNK UNK, UNK
     Route: 042
     Dates: start: 20190206

REACTIONS (1)
  - Skin reaction [Unknown]
